FAERS Safety Report 8655161 (Version 5)
Quarter: 2014Q2

REPORT INFORMATION
  Report Type: Report from Study
  Country: DE (occurrence: DE)
  Receive Date: 20120709
  Receipt Date: 20140418
  Transmission Date: 20141212
  Serious: Yes (Death, Life-Threatening, Hospitalization)
  Sender: FDA-Public Use
  Company Number: DE-GLAXOSMITHKLINE-Z0016097A

PATIENT
  Age: 57 Year
  Sex: Male
  Weight: 117 kg

DRUGS (1)
  1. OFATUMUMAB [Suspect]
     Indication: CHRONIC LYMPHOCYTIC LEUKAEMIA REFRACTORY
     Route: 042
     Dates: start: 20110829, end: 20120530

REACTIONS (2)
  - Hepatitis B [Not Recovered/Not Resolved]
  - Multi-organ failure [Fatal]
